FAERS Safety Report 8790358 (Version 1)
Quarter: 2012Q4

REPORT INFORMATION
  Report Type: 
  Country: US (occurrence: US)
  Receive Date: 20120917
  Receipt Date: 20120917
  Transmission Date: 20130627
  Serious: No
  Sender: FDA-Public Use
  Company Number: US-009507513-1206USA04489

PATIENT

DRUGS (4)
  1. FOSAMAX PLUS D [Suspect]
     Indication: OSTEOPOROSIS
     Dosage: 70 mg, QW
     Route: 048
     Dates: start: 2004
  2. CRESTOR [Concomitant]
  3. LEXAPRO [Concomitant]
  4. SYNTHROID [Concomitant]

REACTIONS (3)
  - Arthritis [Not Recovered/Not Resolved]
  - Product packaging issue [Unknown]
  - Movement disorder [Not Recovered/Not Resolved]
